FAERS Safety Report 12667501 (Version 1)
Quarter: 2016Q3

REPORT INFORMATION
  Report Type: Spontaneous
  Country: US (occurrence: US)
  Receive Date: 20160819
  Receipt Date: 20160819
  Transmission Date: 20161109
  Serious: No
  Sender: FDA-Public Use
  Company Number: US-PFIZER INC-2016390605

PATIENT
  Age: 84 Year
  Sex: Female

DRUGS (1)
  1. TOVIAZ [Suspect]
     Active Substance: FESOTERODINE FUMARATE
     Indication: POLYURIA
     Dosage: 4 MG, 1X/DAY
     Dates: start: 201608

REACTIONS (2)
  - Drug ineffective [Unknown]
  - Physical product label issue [Unknown]

NARRATIVE: CASE EVENT DATE: 201608
